FAERS Safety Report 17638575 (Version 1)
Quarter: 2020Q2

REPORT INFORMATION
  Report Type: Spontaneous
  Country: FI (occurrence: FI)
  Receive Date: 20200407
  Receipt Date: 20200407
  Transmission Date: 20200713
  Serious: Yes (Life-Threatening)
  Sender: FDA-Public Use
  Company Number: FI-BAUSCH-BL-2020-009900

PATIENT
  Age: 64 Year
  Sex: Female

DRUGS (1)
  1. PREDNISOLON [Suspect]
     Active Substance: PREDNISOLONE
     Indication: MYALGIA
     Route: 048

REACTIONS (2)
  - Adrenal atrophy [Recovered/Resolved with Sequelae]
  - Glucocorticoid deficiency [Recovered/Resolved with Sequelae]

NARRATIVE: CASE EVENT DATE: 20180101
